FAERS Safety Report 14302294 (Version 1)
Quarter: 2017Q4

REPORT INFORMATION
  Report Type: Spontaneous
  Country: US (occurrence: US)
  Receive Date: 20171219
  Receipt Date: 20171219
  Transmission Date: 20180321
  Serious: No
  Sender: FDA-Public Use
  Company Number: US-SUPERNUS PHARMACEUTICALS, INC.-2017SUP00217

PATIENT
  Sex: Female

DRUGS (2)
  1. TROKENDI XR [Suspect]
     Active Substance: TOPIRAMATE
     Indication: MIGRAINE
     Dosage: 150 MG, UNK
  2. TROKENDI XR [Suspect]
     Active Substance: TOPIRAMATE
     Dosage: 200 MG, UNK

REACTIONS (2)
  - Migraine [Unknown]
  - Drug ineffective [Unknown]
